FAERS Safety Report 6863644-3 (Version None)
Quarter: 2010Q3

REPORT INFORMATION
  Report Type: 
  Country: None (occurrence: None)
  Receive Date: 20100721
  Receipt Date: 20080310
  Transmission Date: 20110219
  Serious: No
  Sender: FDA-Public Use
  Company Number: US-PFIZER INC-2008022919

PATIENT
  Sex: Female
  Weight: 70.454 kg

DRUGS (7)
  1. CHANTIX [Suspect]
     Indication: SMOKING CESSATION THERAPY
     Route: 048
     Dates: start: 20080306
  2. LANTUS [Concomitant]
  3. HUMALOG [Concomitant]
  4. METFORMIN [Concomitant]
  5. SIMVASTATIN [Concomitant]
  6. HERBAL NOS/MINERALS NOS [Concomitant]
  7. PRILOSEC [Concomitant]

REACTIONS (3)
  - ABDOMINAL PAIN UPPER [None]
  - DIARRHOEA [None]
  - HEADACHE [None]
